FAERS Safety Report 7583056-7 (Version None)
Quarter: 2011Q2

REPORT INFORMATION
  Report Type: 
  Country: None (occurrence: None)
  Receive Date: 20110630
  Receipt Date: 20110622
  Transmission Date: 20111010
  Serious: Yes (Hospitalization, Other)
  Sender: FDA-Public Use
  Company Number: BR-PFIZER INC-2011137097

PATIENT
  Age: 81 Year
  Sex: Female

DRUGS (2)
  1. PANTOPRAZOLE [Suspect]
     Dosage: UNKNOWN DAILY DOSE
  2. PREDNISONE [Concomitant]
     Dosage: UNKNOWN DAILY DOSE

REACTIONS (4)
  - DIABETES MELLITUS [None]
  - PNEUMONIA [None]
  - HYPERTENSION [None]
  - ABDOMINAL HERNIA [None]
